FAERS Safety Report 9034203 (Version 1)
Quarter: 2013Q1

REPORT INFORMATION
  Report Type: Spontaneous
  Country: CA (occurrence: CA)
  Receive Date: 20130128
  Receipt Date: 20130128
  Transmission Date: 20140127
  Serious: Yes (Hospitalization)
  Sender: FDA-Public Use
  Company Number: CA-AMGEN-US156945

PATIENT
  Age: 49 Year
  Sex: Female
  Weight: 93.1 kg

DRUGS (3)
  1. ENBREL [Suspect]
     Indication: RHEUMATOID ARTHRITIS
     Dosage: 25 MG, 2 TIMES/WK
     Route: 058
     Dates: start: 200501, end: 20050808
  2. METHOTREXATE [Suspect]
     Dosage: UNK UNK, UNK
     Dates: start: 200209
  3. SULFASALAZINE [Suspect]
     Dosage: UNK UNK, UNK
     Dates: start: 200312

REACTIONS (8)
  - Liver abscess [Not Recovered/Not Resolved]
  - Crohn^s disease [Recovered/Resolved]
  - Condition aggravated [Recovered/Resolved]
  - Fistula [Unknown]
  - Urticaria [Unknown]
  - Pyrexia [Unknown]
  - Anaemia [Recovered/Resolved]
  - Condition aggravated [Recovered/Resolved]
